FAERS Safety Report 9128910 (Version 1)
Quarter: 2013Q1

REPORT INFORMATION
  Report Type: Spontaneous
  Country: US (occurrence: US)
  Receive Date: 20130228
  Receipt Date: 20130228
  Transmission Date: 20140127
  Serious: No
  Sender: FDA-Public Use
  Company Number: US-ABBOTT-13P-163-1041294-00

PATIENT
  Sex: Male
  Weight: 83.08 kg

DRUGS (2)
  1. ANDROGEL [Suspect]
     Indication: BLOOD TESTOSTERONE DECREASED
     Route: 061
     Dates: start: 201209
  2. ANDROGEL [Suspect]
     Route: 061
     Dates: start: 201206, end: 201209

REACTIONS (1)
  - Blood testosterone abnormal [Not Recovered/Not Resolved]
